FAERS Safety Report 18972793 (Version 2)
Quarter: 2021Q1

REPORT INFORMATION
  Report Type: Spontaneous
  Country: EG (occurrence: EG)
  Receive Date: 20210305
  Receipt Date: 20210317
  Transmission Date: 20210420
  Serious: Yes (Other)
  Sender: FDA-Public Use
  Company Number: EG-NOVOPROD-791659

PATIENT
  Age: 816 Month
  Sex: Female
  Weight: 75 kg

DRUGS (3)
  1. MIXTARD 30 HM PENFILL [Suspect]
     Active Substance: INSULIN HUMAN
     Indication: DIABETES MELLITUS
     Dosage: 65 IU, QD (40?0?25) FROM 10 MONTHS
     Route: 058
     Dates: start: 2020
  2. PLAVIX [Concomitant]
     Active Substance: CLOPIDOGREL BISULFATE
     Indication: ANTICOAGULANT THERAPY
     Dosage: ONCE DAILY
     Route: 048
  3. ASPIRIN (E.C.) [Concomitant]
     Active Substance: ASPIRIN
     Indication: ANTICOAGULANT THERAPY
     Dosage: ONCE DAILY
     Route: 048

REACTIONS (1)
  - Coronary arterial stent insertion [Not Recovered/Not Resolved]

NARRATIVE: CASE EVENT DATE: 2020
